FAERS Safety Report 5638023-7 (Version None)
Quarter: 2008Q1

REPORT INFORMATION
  Report Type: 
  Country: None (occurrence: None)
  Receive Date: 20080222
  Receipt Date: 20080222
  Transmission Date: 20080703
  Serious: Yes (Death)
  Sender: FDA-Public Use
  Company Number: None

PATIENT
  Sex: Male

DRUGS (16)
  1. REVLIMID [Suspect]
     Indication: MYELOFIBROSIS
     Dosage: 5MG DAILY PO
     Route: 048
     Dates: start: 20060510, end: 20071110
  2. ALLOPURINOL [Concomitant]
  3. EPLGEN [Concomitant]
  4. NEUPOGEN [Concomitant]
  5. FLUOXETINE [Concomitant]
  6. FOLIC ACID [Concomitant]
  7. FUROSEMIDE [Concomitant]
  8. LORAZEPAM [Concomitant]
  9. LOSARTAN POTASSIUM [Concomitant]
  10. MORPHINE [Concomitant]
  11. MULTI-VITAMIN [Concomitant]
  12. EXJADE [Concomitant]
  13. OMEPRAZOLE [Concomitant]
  14. ONDASETRON [Concomitant]
  15. PYRIDOXINE [Concomitant]
  16. SPIRONOLACTONE [Concomitant]

REACTIONS (9)
  - ANAEMIA [None]
  - CARDIAC FAILURE CONGESTIVE [None]
  - CARDIO-RESPIRATORY ARREST [None]
  - CONDITION AGGRAVATED [None]
  - CONGESTIVE CARDIOMYOPATHY [None]
  - PANCYTOPENIA [None]
  - PLEURAL EFFUSION [None]
  - REFUSAL OF TREATMENT BY PATIENT [None]
  - RENAL FAILURE CHRONIC [None]
